FAERS Safety Report 20951195 (Version 1)
Quarter: 2022Q2

REPORT INFORMATION
  Report Type: Spontaneous
  Country: US (occurrence: None)
  Receive Date: 20220613
  Receipt Date: 20220613
  Transmission Date: 20220721
  Serious: No
  Sender: FDA-Public Use
  Company Number: None

PATIENT
  Age: 70 Year
  Sex: Female
  Weight: 84.64 kg

DRUGS (8)
  1. MYLERAN [Suspect]
     Active Substance: BUSULFAN
     Indication: Essential thrombocythaemia
     Dosage: FREQUENCY : DAILY;?
     Route: 048
  2. ASPIRIN [Concomitant]
  3. ATORVASTATIN [Concomitant]
  4. FERROUS SULFATE [Concomitant]
  5. METOPROLOL [Concomitant]
     Active Substance: METOPROLOL
  6. NAPROXEN [Concomitant]
  7. NIFEDIPINE [Concomitant]
  8. PANTOPRAZOLE [Concomitant]

REACTIONS (2)
  - Platelet count decreased [None]
  - Therapy interrupted [None]
